FAERS Safety Report 5761407-3 (Version None)
Quarter: 2008Q2

REPORT INFORMATION
  Report Type: 
  Country: None (occurrence: None)
  Receive Date: 20080606
  Receipt Date: 20080527
  Transmission Date: 20081010
  Serious: Yes (Hospitalization)
  Sender: FDA-Public Use
  Company Number: KR-ABBOTT-08P-090-0453738-00

PATIENT
  Sex: Female

DRUGS (10)
  1. ZEMPLAR [Suspect]
     Indication: HYPERPARATHYROIDISM SECONDARY
     Route: 051
     Dates: start: 20080111, end: 20080409
  2. DARVEPOETIN BETA [Concomitant]
     Indication: BONE MARROW FAILURE
     Route: 058
     Dates: start: 20070402
  3. RAMIPRIL [Concomitant]
     Indication: HYPERTENSION
     Route: 048
     Dates: start: 20070103
  4. RAMIPRIL [Concomitant]
     Indication: PROPHYLAXIS
  5. RENALMIN [Concomitant]
     Indication: VITAMIN SUPPLEMENTATION
     Route: 048
     Dates: start: 20030905
  6. HEMOCONTIN [Concomitant]
     Indication: MEDICAL DIET
     Route: 048
     Dates: start: 20070115
  7. CARVEDILOL [Concomitant]
     Indication: HYPERTENSION
     Route: 048
     Dates: start: 20040220
  8. CARVEDILOL [Concomitant]
     Indication: PROPHYLAXIS
  9. AMLODIPINE [Concomitant]
     Indication: HYPERTENSION
     Route: 048
     Dates: start: 20060804
  10. AMLODIPINE [Concomitant]
     Indication: PROPHYLAXIS

REACTIONS (1)
  - HAEMATOCHEZIA [None]
